FAERS Safety Report 5567805-5 (Version None)
Quarter: 2007Q4

REPORT INFORMATION
  Report Type: 
  Country: None (occurrence: None)
  Receive Date: 20071217
  Receipt Date: 20071203
  Transmission Date: 20080405
  Serious: Yes (Death)
  Sender: FDA-Public Use
  Company Number: 1-15563337/MED-07263

PATIENT
  Age: 70 Year
  Sex: Male

DRUGS (3)
  1. BACTRIM [Suspect]
     Dosage: ORAL
     Route: 048
  2. REVLIMID [Suspect]
     Indication: MULTIPLE MYELOMA
     Dosage: 15MG PER DAY, ORAL
     Route: 048
     Dates: start: 20061212, end: 20061215
  3. CIPRO [Suspect]

REACTIONS (1)
  - RENAL FAILURE ACUTE [None]
